FAERS Safety Report 17760072 (Version 1)
Quarter: 2020Q2

REPORT INFORMATION
  Report Type: Spontaneous
  Country: US (occurrence: US)
  Receive Date: 20200507
  Receipt Date: 20200507
  Transmission Date: 20200714
  Serious: Yes (Death)
  Sender: FDA-Public Use
  Company Number: None

PATIENT
  Age: 64 Year
  Sex: Male
  Weight: 86.09 kg

DRUGS (13)
  1. ENOXAPARIN [Concomitant]
     Active Substance: ENOXAPARIN
  2. BACTRIM [Concomitant]
     Active Substance: SULFAMETHOXAZOLE\TRIMETHOPRIM
  3. FUROSEMIDE. [Concomitant]
     Active Substance: FUROSEMIDE
  4. BOSULIF [Suspect]
     Active Substance: BOSUTINIB MONOHYDRATE
     Route: 048
     Dates: start: 20190516
  5. ACYCLOVIR. [Concomitant]
     Active Substance: ACYCLOVIR
  6. DULOXETINE. [Concomitant]
     Active Substance: DULOXETINE
  7. KETOROLAC [Concomitant]
     Active Substance: KETOROLAC TROMETHAMINE
  8. TRIMETHOBENZAMIDE [Concomitant]
     Active Substance: TRIMETHOBENZAMIDE
  9. CIPROFLOXACIN. [Concomitant]
     Active Substance: CIPROFLOXACIN
  10. AUGMENTIN [Concomitant]
     Active Substance: AMOXICILLIN\CLAVULANATE POTASSIUM
  11. NITROGLYCERIN. [Concomitant]
     Active Substance: NITROGLYCERIN
  12. DEXAMETHASONE. [Concomitant]
     Active Substance: DEXAMETHASONE
  13. TAMSULOSIN [Concomitant]
     Active Substance: TAMSULOSIN

REACTIONS (1)
  - Disease progression [None]
